FAERS Safety Report 21730487 (Version 1)
Quarter: 2022Q4

REPORT INFORMATION
  Report Type: Report from Study
  Country: GB (occurrence: GB)
  Receive Date: 20221215
  Receipt Date: 20221215
  Transmission Date: 20230113
  Serious: Yes (Hospitalization)
  Sender: FDA-Public Use
  Company Number: GB-BAXTER-2022BAX026365

PATIENT
  Age: 86 Year
  Sex: Female

DRUGS (12)
  1. WATER FOR INJECTION [Suspect]
     Active Substance: WATER
     Indication: Parenteral nutrition
     Dosage: UNK
     Route: 065
     Dates: start: 20221111
  2. CERNEVIT [Suspect]
     Active Substance: VITAMINS
     Indication: Parenteral nutrition
     Dosage: UNK
     Route: 065
     Dates: start: 20221111
  3. DEXTROSE [Suspect]
     Active Substance: DEXTROSE
     Indication: Parenteral nutrition
     Dosage: UNK
     Route: 065
     Dates: start: 20221111
  4. SYNTHAMIN [Suspect]
     Active Substance: AMINO ACIDS
     Indication: Parenteral nutrition
     Dosage: UNK
     Route: 065
     Dates: start: 20221111
  5. IRON\MINERALS\POTASSIUM IOD\SODIUM FLUORIDE\SODIUM MOLYBDATE\SODIUM SE [Suspect]
     Active Substance: IRON\MINERALS\POTASSIUM IOD\SODIUM FLUORIDE\SODIUM MOLYBDATE\SODIUM SELENITE\ZINC
     Indication: Parenteral nutrition
     Dosage: UNK
     Route: 065
     Dates: start: 20221111
  6. POTASSIUM CHLORIDE [Suspect]
     Active Substance: POTASSIUM CHLORIDE
     Indication: Parenteral nutrition
     Dosage: UNK
     Route: 065
     Dates: start: 20221111
  7. MAGNESIUM SULFATE [Suspect]
     Active Substance: MAGNESIUM SULFATE
     Indication: Parenteral nutrition
     Dosage: UNK
     Route: 065
     Dates: start: 20221111
  8. CALCIUM CHLORIDE [Suspect]
     Active Substance: CALCIUM CHLORIDE
     Indication: Parenteral nutrition
     Dosage: UNK
     Route: 065
     Dates: start: 20221111
  9. SODIUM CHLORIDE [Suspect]
     Active Substance: SODIUM CHLORIDE
     Indication: Parenteral nutrition
     Dosage: UNK
     Route: 065
     Dates: start: 20221111
  10. SODIUM GLYCEROPHOSPHATE [Suspect]
     Active Substance: SODIUM GLYCEROPHOSPHATE
     Indication: Parenteral nutrition
     Dosage: UNK
     Route: 065
     Dates: start: 20221111
  11. WATER FOR INJECTION [Suspect]
     Active Substance: WATER
     Indication: Parenteral nutrition
     Dosage: UNK
     Route: 065
     Dates: start: 20221111
  12. UNSPECIFIED INGREDIENT [Suspect]
     Active Substance: UNSPECIFIED INGREDIENT
     Route: 065

REACTIONS (2)
  - Body temperature abnormal [Unknown]
  - Tremor [Unknown]

NARRATIVE: CASE EVENT DATE: 20221111
